FAERS Safety Report 4374949-2 (Version None)
Quarter: 2004Q2

REPORT INFORMATION
  Report Type: 
  Country: None (occurrence: None)
  Receive Date: 20040604
  Receipt Date: 20040525
  Transmission Date: 20050107
  Serious: Yes (Death)
  Sender: FDA-Public Use
  Company Number: 2004AP02894

PATIENT
  Age: 67 Year
  Sex: Female

DRUGS (1)
  1. ACCOLATE [Suspect]
     Dosage: 2 X 20 MG TABLETS DISPENSED
     Dates: start: 20010919

REACTIONS (1)
  - HEPATIC FUNCTION ABNORMAL [None]
